FAERS Safety Report 16234734 (Version 1)
Quarter: 2019Q2

REPORT INFORMATION
  Report Type: Spontaneous
  Country: US (occurrence: US)
  Receive Date: 20190424
  Receipt Date: 20190424
  Transmission Date: 20190711
  Serious: Yes (Hospitalization)
  Sender: FDA-Public Use
  Company Number: US-GLAXOSMITHKLINE-US2019071423

PATIENT
  Age: 23 Year
  Sex: Male

DRUGS (1)
  1. FLONASE ALLERGY RELIEF [Suspect]
     Active Substance: FLUTICASONE PROPIONATE
     Indication: HYPERSENSITIVITY
     Dosage: 1 UNK, 1D
     Route: 045

REACTIONS (3)
  - Psychotic disorder [Recovered/Resolved]
  - Incorrect dose administered [Unknown]
  - Mania [Recovered/Resolved]

NARRATIVE: CASE EVENT DATE: 20180406
